FAERS Safety Report 11743992 (Version 3)
Quarter: 2015Q4

REPORT INFORMATION
  Report Type: Spontaneous
  Country: IL (occurrence: IL)
  Receive Date: 20151116
  Receipt Date: 20151229
  Transmission Date: 20160304
  Serious: Yes (Hospitalization)
  Sender: FDA-Public Use
  Company Number: IL-BAYER-2015-459676

PATIENT
  Sex: Male

DRUGS (1)
  1. XOFIGO [Suspect]
     Active Substance: RADIUM RA-223 DICHLORIDE
     Dosage: 50 KBQ, UNK
     Dates: start: 20151114, end: 2015

REACTIONS (3)
  - General physical health deterioration [None]
  - Pyrexia [None]
  - General physical health deterioration [Not Recovered/Not Resolved]
